APPROVED DRUG PRODUCT: GILENYA
Active Ingredient: FINGOLIMOD HYDROCHLORIDE
Strength: EQ 0.5MG BASE
Dosage Form/Route: CAPSULE;ORAL
Application: N022527 | Product #001 | TE Code: AB
Applicant: NOVARTIS PHARMACEUTICALS CORP
Approved: Sep 21, 2010 | RLD: Yes | RS: Yes | Type: RX

PATENTS:
Patent 10543179 | Expires: Dec 25, 2027